FAERS Safety Report 19798369 (Version 3)
Quarter: 2021Q4

REPORT INFORMATION
  Report Type: Spontaneous
  Country: PR (occurrence: PR)
  Receive Date: 20210907
  Receipt Date: 20211012
  Transmission Date: 20220303
  Serious: No
  Sender: FDA-Public Use
  Company Number: PR-PFIZER INC-202101023428

PATIENT
  Age: 11 Year
  Sex: Male
  Weight: 25.4 kg

DRUGS (1)
  1. GENOTROPIN [Suspect]
     Active Substance: SOMATROPIN
     Indication: Blood growth hormone
     Dosage: 1 MG,  (6 TIMES A WEEK)
     Dates: start: 202107

REACTIONS (2)
  - Drug dose omission by device [Unknown]
  - Device breakage [Unknown]
